FAERS Safety Report 8734804 (Version 2)
Quarter: 2012Q4

REPORT INFORMATION
  Report Type: 
  Country: MX (occurrence: MX)
  Receive Date: 20120821
  Receipt Date: 20120906
  Transmission Date: 20130627
  Serious: Yes (Other)
  Sender: FDA-Public Use
  Company Number: MX-PFIZER INC-2012199796

PATIENT
  Sex: Female
  Weight: 71 kg

DRUGS (7)
  1. LYRICA [Suspect]
     Indication: NEUROPATHY PERIPHERAL
     Dosage: 4 capsules of 150 mg every 8 hours
     Route: 048
  2. LYRICA [Suspect]
     Indication: PAIN
     Dosage: 4 capsules of 75 mg (300mg) per day
     Route: 048
  3. LYRICA [Suspect]
     Indication: PARAESTHESIA
  4. GABAPENTIN [Suspect]
     Indication: PAIN
     Dosage: 300 mg, 2x/day
     Route: 048
     Dates: end: 201207
  5. GABAPENTIN [Suspect]
     Indication: PARAESTHESIA
  6. NORVAS [Concomitant]
     Indication: HYPERTENSION
     Dosage: 5 mg, 1x/day
     Route: 048
     Dates: start: 20111117
  7. ATACAND [Concomitant]
     Indication: HYPERTENSION
     Dosage: 8 mg, 1x/day
     Route: 048
     Dates: start: 1987

REACTIONS (6)
  - Poisoning [Recovered/Resolved]
  - Weight increased [Recovered/Resolved]
  - Swelling [Recovered/Resolved]
  - Oedema peripheral [Recovered/Resolved]
  - Onychomycosis [Recovered/Resolved]
  - Drug ineffective [Recovered/Resolved]
